FAERS Safety Report 4714798-6 (Version None)
Quarter: 2005Q3

REPORT INFORMATION
  Report Type: 
  Country: None (occurrence: None)
  Receive Date: 20050714
  Receipt Date: 20050714
  Transmission Date: 20060218
  Serious: Yes (Other)
  Sender: FDA-Public Use
  Company Number: None

PATIENT
  Sex: Female

DRUGS (2)
  1. PAXIL [Suspect]
     Indication: STRESS
     Dosage: 20 MG DAILY ORAL
     Route: 048
     Dates: start: 20041120, end: 20050702
  2. DEPAKOTE [Suspect]
     Indication: EPILEPSY
     Dosage: 100 MG DAILY ORAL
     Route: 048
     Dates: start: 19950109, end: 20050712

REACTIONS (6)
  - ABNORMAL BEHAVIOUR [None]
  - DISTURBANCE IN SOCIAL BEHAVIOUR [None]
  - ECONOMIC PROBLEM [None]
  - MARITAL PROBLEM [None]
  - PERSONALITY CHANGE [None]
  - PROMISCUITY [None]
